FAERS Safety Report 6212561-0 (Version None)
Quarter: 2009Q2

REPORT INFORMATION
  Report Type: 
  Country: None (occurrence: None)
  Receive Date: 20090603
  Receipt Date: 20090521
  Transmission Date: 20091009
  Serious: Yes (Other)
  Sender: FDA-Public Use
  Company Number: PHHY2009JP19973

PATIENT
  Age: 78 Year
  Sex: Female

DRUGS (6)
  1. DIOVAN [Suspect]
     Indication: HYPERTENSION
     Dosage: 40 MG DAILY
     Route: 048
     Dates: start: 20090412, end: 20090514
  2. LASIX [Concomitant]
     Dosage: 40 MG, UNK
     Route: 048
  3. AMLODIPINE [Concomitant]
     Dosage: 5 MG, UNK
     Route: 048
  4. DIGOXIN [Concomitant]
     Dosage: 0.125 MG, UNK
     Route: 048
  5. BUP-4 [Concomitant]
     Dosage: 20 MG, UNK
     Route: 048
  6. MAGTECT [Concomitant]
     Dosage: 30 ML, UNK
     Route: 048

REACTIONS (1)
  - EOSINOPHIL COUNT INCREASED [None]
